FAERS Safety Report 14257380 (Version 1)
Quarter: 2017Q4

REPORT INFORMATION
  Report Type: Spontaneous
  Country: ES (occurrence: ES)
  Receive Date: 20171207
  Receipt Date: 20171207
  Transmission Date: 20180321
  Serious: Yes (Hospitalization, Other)
  Sender: FDA-Public Use
  Company Number: ES-CIPLA LTD.-2017ES21459

PATIENT

DRUGS (7)
  1. HIBOR [Concomitant]
     Active Substance: BEMIPARIN SODIUM
     Indication: THROMBOSIS PROPHYLAXIS
     Dosage: 1 PER DAY, 3500 IU ANTI-XA/0.2 ML SOLUTION FOR INJECTION IN PRE-FILLED SYRINGE; IN THE EVENING
     Route: 058
     Dates: start: 2015, end: 2015
  2. CARVEDILOL. [Concomitant]
     Active Substance: CARVEDILOL
     Dosage: 12.5 MG, DAILY
     Route: 065
  3. EMCONCOR [Concomitant]
     Active Substance: BISOPROLOL FUMARATE
     Indication: HYPERTENSION
     Dosage: 2.5 MG, PER DAY AT BREAKFAST AND DINNER, EVERY 12 HOURS
     Route: 048
  4. CAMELLIA SINENSIS [Interacting]
     Active Substance: GREEN TEA LEAF
     Dosage: UNK
     Route: 065
  5. SIMVASTATIN CINFA [Concomitant]
     Indication: HYPERCHOLESTEROLAEMIA
     Dosage: 20 MG, PER DAY AT DINNER
     Route: 048
  6. ESCITALOPRAM [Suspect]
     Active Substance: ESCITALOPRAM OXALATE
     Indication: ANXIETY
     Dosage: 5 MG, PER DAY AT BREAKFAST, FOR SEVERAL YEARS
     Route: 048
     Dates: end: 2015
  7. ALPRAZOLAM. [Concomitant]
     Active Substance: ALPRAZOLAM
     Dosage: 0.5 MG, AT BREAKFAST AND DINNER
     Route: 065

REACTIONS (4)
  - Food interaction [Unknown]
  - Haemorrhage [Recovered/Resolved]
  - Drug interaction [Unknown]
  - Haemodynamic instability [Unknown]

NARRATIVE: CASE EVENT DATE: 2015
